FAERS Safety Report 25615813 (Version 1)
Quarter: 2025Q3

REPORT INFORMATION
  Report Type: Spontaneous
  Country: CN (occurrence: CN)
  Receive Date: 20250729
  Receipt Date: 20250729
  Transmission Date: 20251020
  Serious: Yes (Hospitalization, Other)
  Sender: SANOFI AVENTIS
  Company Number: CN-SA-2025SA213893

PATIENT
  Age: 53 Year
  Sex: Male
  Weight: 83 kg

DRUGS (1)
  1. CLOPIDOGREL BISULFATE [Suspect]
     Active Substance: CLOPIDOGREL BISULFATE
     Indication: Platelet aggregation inhibition
     Route: 048
     Dates: start: 20250717, end: 20250717

REACTIONS (6)
  - Gastrooesophageal reflux disease [Recovering/Resolving]
  - Chest discomfort [Recovering/Resolving]
  - Dyspepsia [Recovering/Resolving]
  - Depressed mood [Recovering/Resolving]
  - Breath sounds abnormal [Recovering/Resolving]
  - Mucosal irritation [Recovering/Resolving]

NARRATIVE: CASE EVENT DATE: 20250717
